FAERS Safety Report 9122426 (Version 1)
Quarter: 2013Q1

REPORT INFORMATION
  Report Type: Report from Study
  Country: IT (occurrence: IT)
  Receive Date: 20130114
  Receipt Date: 20130114
  Transmission Date: 20140127
  Serious: Yes (Death)
  Sender: FDA-Public Use
  Company Number: IT-BAYER-2013-002049

PATIENT
  Age: 45 Year
  Sex: Male

DRUGS (2)
  1. SORAFENIB (RAF KINASE INHIBITOR) [Suspect]
     Indication: HEPATOCELLULAR CARCINOMA
     Dosage: DAILY DOSE 800 MG
  2. EVEROLIMUS [Concomitant]
     Indication: HEPATOCELLULAR CARCINOMA
     Dosage: 0.75 MG, BID

REACTIONS (1)
  - Hepatocellular carcinoma [Fatal]
